FAERS Safety Report 10913067 (Version 1)
Quarter: 2015Q1

REPORT INFORMATION
  Report Type: Spontaneous
  Country: US (occurrence: US)
  Receive Date: 20150313
  Receipt Date: 20150313
  Transmission Date: 20150721
  Serious: Yes (Other)
  Sender: FDA-Public Use
  Company Number: US-PFIZER INC-2015084576

PATIENT
  Age: 72 Year
  Sex: Female
  Weight: 102 kg

DRUGS (8)
  1. JANUVIA [Concomitant]
     Active Substance: SITAGLIPTIN PHOSPHATE
     Indication: DIABETES MELLITUS
     Dosage: 100 MG, DAILY
  2. ADVIL [Suspect]
     Active Substance: IBUPROFEN
     Indication: PAIN IN EXTREMITY
  3. ADVIL [Suspect]
     Active Substance: IBUPROFEN
     Indication: PAIN
     Dosage: 2 PILLS AT A TIME, NORMALLY TOOK 4 PILLS A DAY, DID THAT VERY FREQUENTLY, AS NEEDED
  4. HYDRALAZINE [Concomitant]
     Active Substance: HYDRALAZINE HYDROCHLORIDE
     Indication: HYPERTENSION
     Dosage: 200 MG, DAILY
  5. IMODIUM [Concomitant]
     Active Substance: LOPERAMIDE HYDROCHLORIDE
     Indication: FAECAL INCONTINENCE
     Dosage: UNK, AS NEEDED
  6. DYRENIUM [Concomitant]
     Active Substance: TRIAMTERENE
     Indication: HYPERTENSION
     Dosage: UNK
  7. DYRENIUM [Concomitant]
     Active Substance: TRIAMTERENE
     Indication: DIURETIC THERAPY
  8. INSULIN [Concomitant]
     Active Substance: INSULIN NOS
     Dosage: BASAL 20-25U ONCE DAILY

REACTIONS (4)
  - Pulmonary hypertension [Unknown]
  - Carpal tunnel syndrome [Unknown]
  - Faecal incontinence [Unknown]
  - Limb injury [Unknown]
